FAERS Safety Report 6814553-7 (Version None)
Quarter: 2010Q2

REPORT INFORMATION
  Report Type: 
  Country: None (occurrence: None)
  Receive Date: 20100629
  Receipt Date: 20100617
  Transmission Date: 20101027
  Serious: Yes (Other)
  Sender: FDA-Public Use
  Company Number: 2010-2253

PATIENT
  Age: 36 Year
  Sex: Female
  Weight: 68 kg

DRUGS (2)
  1. LANREOTIDE AUTOGEL (LANREOTIDE) (LANREOTIDE ACETATE) [Suspect]
     Indication: ACROMEGALY
  2. PEGVISOMANT (PEGVISOMANT) [Suspect]
     Indication: ACROMEGALY
     Dosage: 15 MG (15 MG,1 IN 1 D), SUBCUTANEOUS
     Route: 058
     Dates: start: 20080528

REACTIONS (2)
  - ADENOMA BENIGN [None]
  - DISEASE PROGRESSION [None]
